FAERS Safety Report 21182963 (Version 2)
Quarter: 2022Q4

REPORT INFORMATION
  Report Type: Report from Study
  Country: US (occurrence: US)
  Receive Date: 20220808
  Receipt Date: 20221012
  Transmission Date: 20230113
  Serious: Yes (Hospitalization, Other)
  Sender: FDA-Public Use
  Company Number: US-NOVARTISPH-NVSC2022US174681

PATIENT
  Age: 18 Year
  Sex: Female
  Weight: 52.4 kg

DRUGS (1)
  1. ILARIS [Suspect]
     Active Substance: CANAKINUMAB
     Indication: Cryopyrin associated periodic syndrome
     Dosage: 300 MG, QMO
     Route: 058
     Dates: start: 20191103, end: 20220701

REACTIONS (1)
  - Perineal abscess [Not Recovered/Not Resolved]

NARRATIVE: CASE EVENT DATE: 20220323
